FAERS Safety Report 24704236 (Version 2)
Quarter: 2024Q4

REPORT INFORMATION
  Report Type: Spontaneous
  Country: US (occurrence: US)
  Receive Date: 20241206
  Receipt Date: 20241206
  Transmission Date: 20250115
  Serious: Yes (Hospitalization)
  Sender: ROCHE
  Company Number: US-ROCHE-10000143319

PATIENT
  Age: 70 Year
  Sex: Female
  Weight: 96.2 kg

DRUGS (15)
  1. OCREVUS [Suspect]
     Active Substance: OCRELIZUMAB
     Indication: Product used for unknown indication
     Dosage: THE 2 OCREVUS VIALS FROM 22-NOV-2024.
     Route: 042
     Dates: start: 202108
  2. ALPRAZOLAM [Concomitant]
     Active Substance: ALPRAZOLAM
  3. ATORVASTATIN [Concomitant]
     Active Substance: ATORVASTATIN
  4. ESTRADIOL [Concomitant]
     Active Substance: ESTRADIOL
  5. SYNTHROID [Concomitant]
     Active Substance: LEVOTHYROXINE SODIUM
     Indication: Hypothyroidism
  6. MAGOX [Concomitant]
  7. OMEPRAZOLE [Concomitant]
     Active Substance: OMEPRAZOLE
  8. ONDANSETRON [Concomitant]
     Active Substance: ONDANSETRON
  9. OXYCODONE AND ACETAMINOPHEN [Concomitant]
     Active Substance: ACETAMINOPHEN\OXYCODONE HYDROCHLORIDE
  10. POTASSIUM CHLORIDE [Concomitant]
     Active Substance: POTASSIUM CHLORIDE
  11. QUETIAPINE [Concomitant]
     Active Substance: QUETIAPINE
  12. TIZANIDINE [Concomitant]
     Active Substance: TIZANIDINE
  13. TOPIRAMATE [Concomitant]
     Active Substance: TOPIRAMATE
  14. JARDIANCE [Concomitant]
     Active Substance: EMPAGLIFLOZIN
  15. LOVENOX [Concomitant]
     Active Substance: ENOXAPARIN SODIUM

REACTIONS (3)
  - Acute kidney injury [Unknown]
  - Hypotension [Unknown]
  - Injection site extravasation [Unknown]

NARRATIVE: CASE EVENT DATE: 20241122
